FAERS Safety Report 6210286-9 (Version None)
Quarter: 2009Q2

REPORT INFORMATION
  Report Type: 
  Country: None (occurrence: None)
  Receive Date: 20090601
  Receipt Date: 20090501
  Transmission Date: 20091009
  Serious: No
  Sender: FDA-Public Use
  Company Number: US-BAYER-200913089NA

PATIENT
  Age: 25 Year
  Sex: Female
  Weight: 65 kg

DRUGS (2)
  1. YASMIN [Suspect]
     Indication: CONTRACEPTION
     Route: 048
     Dates: start: 20060708, end: 20080528
  2. ONE-A -DAY WOMEN'S [Suspect]
     Indication: VITAMIN SUPPLEMENTATION
     Route: 048
     Dates: end: 20080527

REACTIONS (1)
  - PREGNANCY ON ORAL CONTRACEPTIVE [None]
